FAERS Safety Report 12892419 (Version 4)
Quarter: 2017Q2

REPORT INFORMATION
  Report Type: Spontaneous
  Country: US (occurrence: US)
  Receive Date: 20161028
  Receipt Date: 20170428
  Transmission Date: 20170830
  Serious: No
  Sender: FDA-Public Use
  Company Number: US-PFIZER INC-2016497630

PATIENT
  Age: 57 Year
  Sex: Female

DRUGS (3)
  1. IBRANCE [Suspect]
     Active Substance: PALBOCICLIB
     Indication: BREAST CANCER FEMALE
     Dosage: 100 MG, CYCLIC (EVERY DAY FOR 21 DAYS THEN TAKE 7 DAYS OFF AS DIRECTED)
     Dates: start: 20161012
  2. LETROZOLE. [Concomitant]
     Active Substance: LETROZOLE
     Dosage: UNK
     Route: 061
  3. IBRANCE [Suspect]
     Active Substance: PALBOCICLIB
     Dosage: 125 MG, CYCLIC (TAKE 1 EVERY DAY FOR 21 DAYS ON/ AND 7 DAYS OFF)
     Dates: start: 20161013

REACTIONS (8)
  - Nausea [Unknown]
  - Alopecia [Unknown]
  - Throat irritation [Unknown]
  - Neuropathy peripheral [Unknown]
  - Headache [Unknown]
  - Dizziness [Unknown]
  - Drug dose omission [Unknown]
  - Cardiac disorder [Unknown]
